FAERS Safety Report 10160278 (Version 2)
Quarter: 2014Q2

REPORT INFORMATION
  Report Type: Report from Study
  Country: GB (occurrence: GB)
  Receive Date: 20140508
  Receipt Date: 20140508
  Transmission Date: 20141212
  Serious: Yes (Other)
  Sender: FDA-Public Use
  Company Number: GB-JNJFOC-20130801520

PATIENT
  Sex: Male

DRUGS (14)
  1. SIMPONI [Suspect]
     Indication: PRODUCT USED FOR UNKNOWN INDICATION
     Route: 058
  2. SIMPONI [Suspect]
     Indication: PRODUCT USED FOR UNKNOWN INDICATION
     Route: 058
     Dates: start: 20130625
  3. GLYCERYL TRINITRATE [Concomitant]
     Indication: ANGINA PECTORIS
     Route: 065
  4. SIMVASTATIN [Concomitant]
     Indication: BLOOD CHOLESTEROL
     Route: 065
  5. PEPTAC [Concomitant]
     Indication: DYSPEPSIA
     Dosage: 2-4 MIS
     Route: 065
  6. AMITRIPTYLINE [Concomitant]
     Indication: PAIN
     Route: 065
  7. ASPIRIN [Concomitant]
     Route: 065
  8. CITALOPRAM [Concomitant]
     Indication: DEPRESSION
     Route: 065
  9. DILTIAZEM [Concomitant]
     Route: 065
  10. FEXOFENADINE [Concomitant]
     Route: 065
  11. ISOSORBIDE MONONITRATE [Concomitant]
     Route: 065
  12. OMEPRAZOLE [Concomitant]
     Route: 065
  13. SERETIDE [Concomitant]
     Indication: ASTHMA
     Route: 065
  14. VENTOLIN [Concomitant]
     Indication: ASTHMA
     Route: 065

REACTIONS (2)
  - Bronchial hyperreactivity [Unknown]
  - Nasopharyngitis [Unknown]
